FAERS Safety Report 11582510 (Version 1)
Quarter: 2015Q4

REPORT INFORMATION
  Report Type: Spontaneous
  Country: US (occurrence: US)
  Receive Date: 20151001
  Receipt Date: 20151001
  Transmission Date: 20160304
  Serious: No
  Sender: FDA-Public Use
  Company Number: US-ROCHE-681482

PATIENT
  Sex: Female
  Weight: 84.8 kg

DRUGS (4)
  1. PEGASYS [Suspect]
     Active Substance: PEGINTERFERON ALFA-2A
     Indication: HEPATITIS C
     Route: 058
  2. COPEGUS [Suspect]
     Active Substance: RIBAVIRIN
     Indication: HEPATITIS C
     Route: 048
  3. COPEGUS [Suspect]
     Active Substance: RIBAVIRIN
     Dosage: DOSE DECRESED FOR TWO WEEKS
     Route: 048
  4. COPEGUS [Suspect]
     Active Substance: RIBAVIRIN
     Dosage: INITIAL DOSE RESUMED
     Route: 048

REACTIONS (6)
  - Peripheral swelling [Unknown]
  - Rash [Unknown]
  - Oedema peripheral [Unknown]
  - Anaemia [Unknown]
  - Joint swelling [Unknown]
  - Fatigue [Unknown]
